FAERS Safety Report 11275219 (Version 1)
Quarter: 2015Q3

REPORT INFORMATION
  Report Type: Report from Study
  Country: CA (occurrence: None)
  Receive Date: 20150714
  Receipt Date: 20150714
  Transmission Date: 20151125
  Serious: Yes (Other)
  Sender: FDA-Public Use
  Company Number: 2015FE02348

PATIENT
  Age: 75 Year
  Sex: Male

DRUGS (5)
  1. METFORMIN [Concomitant]
     Active Substance: METFORMIN HYDROCHLORIDE
  2. GLUCOBAY (ACARBOSE) [Concomitant]
  3. GLICIAZIDE [Concomitant]
  4. ACCUPRIL (QUINAPRIL HYROCHLORIDE) [Concomitant]
  5. DEGARELIX (DEGARELIX) POWDER AND SOLVENT FOR SOLUTION FOR INJECTION [Suspect]
     Active Substance: DEGARELIX
     Indication: PROSTATE CANCER
     Route: 058
     Dates: start: 20140818, end: 20150707

REACTIONS (3)
  - Injection site pain [None]
  - Injection site mass [None]
  - Dysuria [None]

NARRATIVE: CASE EVENT DATE: 20150701
